FAERS Safety Report 24671544 (Version 1)
Quarter: 2024Q4

REPORT INFORMATION
  Report Type: Spontaneous
  Country: US (occurrence: US)
  Receive Date: 20241127
  Receipt Date: 20241127
  Transmission Date: 20250114
  Serious: Yes (Other)
  Sender: REGENERON
  Company Number: US-REGENERON PHARMACEUTICALS, INC.-2024-162204

PATIENT
  Sex: Female

DRUGS (4)
  1. EYLEA [Suspect]
     Active Substance: AFLIBERCEPT
     Indication: Neovascular age-related macular degeneration
     Dosage: 2 MG, EVERY SIX WEEKS; FORMULATION: UNKNOWN
     Dates: start: 202302
  2. EYLEA [Suspect]
     Active Substance: AFLIBERCEPT
     Dosage: 2 MG, EVERY 2 WEEKS; FORMULATION: UNKNOWN
     Dates: end: 202406
  3. VABYSMO [Concomitant]
     Active Substance: FARICIMAB-SVOA
     Indication: Neovascular age-related macular degeneration
     Dosage: UNK
     Route: 042
     Dates: start: 2022, end: 202302
  4. VABYSMO [Concomitant]
     Active Substance: FARICIMAB-SVOA
     Dosage: UNK
     Route: 042
     Dates: start: 2024

REACTIONS (4)
  - Retinal haemorrhage [Recovered/Resolved]
  - Adverse event [Unknown]
  - Visual impairment [Unknown]
  - Visual field defect [Unknown]

NARRATIVE: CASE EVENT DATE: 20230101
